FAERS Safety Report 10554041 (Version 2)
Quarter: 2014Q4

REPORT INFORMATION
  Report Type: Spontaneous
  Country: US (occurrence: None)
  Receive Date: 20141028
  Receipt Date: 20141107
  Transmission Date: 20150529
  Serious: Yes (Other)
  Sender: FDA-Public Use
  Company Number: KAD201410-001275

PATIENT
  Age: 59 Year
  Sex: Male
  Weight: 79.88 kg

DRUGS (2)
  1. RIBASPHERE RIBAPAK [Suspect]
     Active Substance: RIBAVIRIN
     Indication: HEPATITIS C
     Dosage: 600 MG AM AND 600 MG PM (1200 MG DAILY), ORAL
     Route: 048
  2. LISINOPRIL (LISINOPRIL) (LISINOPRIL) [Concomitant]
     Active Substance: LISINOPRIL

REACTIONS (5)
  - White blood cell disorder [None]
  - Renal impairment [None]
  - Blood albumin decreased [None]
  - Red blood cell count decreased [None]
  - Blood creatinine increased [None]
